FAERS Safety Report 19690180 (Version 1)
Quarter: 2021Q3

REPORT INFORMATION
  Report Type: Spontaneous
  Country: JP (occurrence: JP)
  Receive Date: 20210812
  Receipt Date: 20210812
  Transmission Date: 20211014
  Serious: Yes (Hospitalization)
  Sender: FDA-Public Use
  Company Number: JP-ELI_LILLY_AND_COMPANY-JP202108001981

PATIENT
  Age: 68 Year
  Sex: Male

DRUGS (4)
  1. OLANZAPINE. [Suspect]
     Active Substance: OLANZAPINE
     Indication: SCHIZOPHRENIA
     Route: 048
  2. IMIPRAMINE HYDROCHLORIDE. [Concomitant]
     Active Substance: IMIPRAMINE HYDROCHLORIDE
  3. SODIUM VALPROATE [Concomitant]
     Active Substance: VALPROATE SODIUM
  4. HALOPERIDOL. [Concomitant]
     Active Substance: HALOPERIDOL

REACTIONS (4)
  - Sepsis [Recovering/Resolving]
  - Decubitus ulcer [Recovering/Resolving]
  - Prerenal failure [Recovering/Resolving]
  - Neuroleptic malignant syndrome [Recovering/Resolving]
